FAERS Safety Report 15249616 (Version 1)
Quarter: 2018Q3

REPORT INFORMATION
  Report Type: Spontaneous
  Country: US (occurrence: US)
  Receive Date: 20180807
  Receipt Date: 20180807
  Transmission Date: 20181010
  Serious: Yes (Life-Threatening, Hospitalization, Other)
  Sender: FDA-Public Use
  Company Number: US-AMGEN-USASP2018106160

PATIENT
  Age: 62 Year
  Sex: Female

DRUGS (2)
  1. XGEVA [Suspect]
     Active Substance: DENOSUMAB
     Indication: BREAST CANCER METASTATIC
     Dosage: 120 MG, UNK
     Route: 065
     Dates: start: 201610
  2. VANDETANIB. [Concomitant]
     Active Substance: VANDETANIB
     Indication: MEDULLARY THYROID CANCER
     Dosage: UNK

REACTIONS (7)
  - Intestinal metastasis [Unknown]
  - Colon cancer metastatic [Unknown]
  - Respiratory failure [Unknown]
  - Hypotension [Unknown]
  - Hypocalcaemia [Unknown]
  - Metastases to stomach [Unknown]
  - Metastases to bone [Unknown]
